FAERS Safety Report 9751521 (Version 1)
Quarter: 2013Q4

REPORT INFORMATION
  Report Type: Spontaneous
  Country: US (occurrence: US)
  Receive Date: 20131212
  Receipt Date: 20131212
  Transmission Date: 20140711
  Serious: No
  Sender: FDA-Public Use
  Company Number: US-PURDUE-USA-2013-0101751

PATIENT
  Age: 52 Year
  Sex: 0

DRUGS (1)
  1. DILAUDID TABLET [Suspect]
     Indication: BACK PAIN
     Dosage: 8 MG, QID
     Route: 048

REACTIONS (3)
  - Erythema [Unknown]
  - Product adhesion issue [Unknown]
  - Pruritus [Unknown]
